FAERS Safety Report 11783277 (Version 1)
Quarter: 2015Q4

REPORT INFORMATION
  Report Type: Report from Study
  Country: US (occurrence: US)
  Receive Date: 20151127
  Receipt Date: 20151127
  Transmission Date: 20160305
  Serious: Yes (Hospitalization)
  Sender: FDA-Public Use
  Company Number: PHEH2015US024505

PATIENT
  Age: 32 Year
  Sex: Female
  Weight: 98 kg

DRUGS (3)
  1. TOBI PODHALER [Suspect]
     Active Substance: TOBRAMYCIN
     Indication: PSEUDOMONAS INFECTION
  2. TOBI PODHALER [Suspect]
     Active Substance: TOBRAMYCIN
     Indication: BRONCHIECTASIS
     Dosage: 112 MG, BID
     Route: 055
     Dates: start: 2015
  3. TOBI PODHALER [Suspect]
     Active Substance: TOBRAMYCIN
     Indication: CYSTIC FIBROSIS LUNG

REACTIONS (3)
  - Cystic fibrosis [Recovered/Resolved]
  - Condition aggravated [Recovered/Resolved]
  - Product use issue [Unknown]

NARRATIVE: CASE EVENT DATE: 201506
